FAERS Safety Report 7742070-9 (Version None)
Quarter: 2011Q3

REPORT INFORMATION
  Report Type: 
  Country: None (occurrence: None)
  Receive Date: 20110912
  Receipt Date: 20110901
  Transmission Date: 20111222
  Serious: Yes (Death, Hospitalization, Other)
  Sender: FDA-Public Use
  Company Number: PHHY2011BR78184

PATIENT
  Sex: Male

DRUGS (3)
  1. RASILEZ [Suspect]
     Dosage: 1 DF, DAILY
     Route: 048
  2. RASILEZ [Suspect]
     Dosage: 150 MG
  3. RASILEZ [Suspect]
     Dosage: 300 MG, 1 DF
     Route: 048

REACTIONS (6)
  - CARDIAC ARREST [None]
  - PNEUMONIA [None]
  - HYPERTENSION [None]
  - MULTI-ORGAN FAILURE [None]
  - RESPIRATORY FAILURE [None]
  - CHRONIC MYELOID LEUKAEMIA [None]
